FAERS Safety Report 8518011-3 (Version None)
Quarter: 2012Q3

REPORT INFORMATION
  Report Type: 
  Country: None (occurrence: None)
  Receive Date: 20120718
  Receipt Date: 20110804
  Transmission Date: 20120928
  Serious: No
  Sender: FDA-Public Use
  Company Number: US-BRISTOL-MYERS SQUIBB COMPANY-15940612

PATIENT
  Age: 60 Year
  Sex: Female
  Weight: 59 kg

DRUGS (12)
  1. CYMBALTA [Concomitant]
     Dosage: FREQUENCY NR
     Route: 048
  2. PROAIR HFA [Concomitant]
     Dosage: INHALER,1 DF : 8.5 MG  1-2 PUFFS DAILY
  3. LIPITOR [Concomitant]
     Route: 048
  4. SINGULAIR [Concomitant]
     Route: 048
  5. PREVACID [Concomitant]
     Route: 048
  6. MAGNESIUM OXIDE [Concomitant]
     Route: 048
  7. COUMADIN [Suspect]
     Indication: DEEP VEIN THROMBOSIS
     Dosage: STARTED 5MG,INCREASED TO 7.5MG,ON 25JUL2011 INCREASED TO 10MG
     Route: 048
     Dates: start: 20110524
  8. METOPROLOL SUCCINATE [Concomitant]
     Dosage: 1 DF : 25MG 1/2TABLET
     Route: 048
  9. MIRAPEX [Concomitant]
     Route: 048
  10. PLAVIX [Concomitant]
     Route: 048
  11. LOVENOX [Concomitant]
     Dosage: SHOTS IN STOMACH
  12. TOPIRAMATE [Concomitant]

REACTIONS (5)
  - CONTUSION [None]
  - ABDOMINAL PAIN [None]
  - DECREASED APPETITE [None]
  - MALAISE [None]
  - DIARRHOEA [None]
